FAERS Safety Report 5214068-6 (Version None)
Quarter: 2007Q1

REPORT INFORMATION
  Report Type: 
  Country: None (occurrence: None)
  Receive Date: 20070122
  Receipt Date: 20070116
  Transmission Date: 20070707
  Serious: Yes (Death, Other)
  Sender: FDA-Public Use
  Company Number: PHRM2007FR00555

PATIENT
  Age: 36 Year
  Sex: Female

DRUGS (1)
  1. ZOMETA [Suspect]
     Dosage: UNK, UNK
     Dates: start: 20050701

REACTIONS (3)
  - MALIGNANT MELANOMA [None]
  - OSTEONECROSIS [None]
  - PAIN IN JAW [None]
